FAERS Safety Report 9413191 (Version 4)
Quarter: 2013Q3

REPORT INFORMATION
  Report Type: Spontaneous
  Country: US (occurrence: US)
  Receive Date: 20130722
  Receipt Date: 20130830
  Transmission Date: 20140515
  Serious: Yes (Other)
  Sender: FDA-Public Use
  Company Number: US-PFIZER INC-2013208767

PATIENT
  Age: 92 Year
  Sex: Female
  Weight: 45.35 kg

DRUGS (1)
  1. LYRICA [Suspect]
     Indication: NEUROPATHY PERIPHERAL
     Dosage: 50 MG, 3X/DAY
     Dates: end: 2013

REACTIONS (3)
  - Glaucoma [Recovering/Resolving]
  - Eye infection [Recovering/Resolving]
  - Intraocular pressure increased [Recovering/Resolving]
